FAERS Safety Report 6234522-8 (Version None)
Quarter: 2009Q2

REPORT INFORMATION
  Report Type: 
  Country: None (occurrence: None)
  Receive Date: 20090618
  Receipt Date: 20090213
  Transmission Date: 20091009
  Serious: No
  Sender: FDA-Public Use
  Company Number: US-BRISTOL-MYERS SQUIBB COMPANY-14506968

PATIENT
  Sex: Male

DRUGS (1)
  1. CARBIDOPA AND LEVODOPA [Suspect]
     Dosage: 1 DOSAGE FORM = CARBIDOPA 25MG + LEVODOPA 100MG.

REACTIONS (1)
  - GAIT DISTURBANCE [None]
